FAERS Safety Report 13070932 (Version 2)
Quarter: 2017Q1

REPORT INFORMATION
  Report Type: Spontaneous
  Country: GB (occurrence: GB)
  Receive Date: 20161229
  Receipt Date: 20170324
  Transmission Date: 20170428
  Serious: Yes (Other)
  Sender: FDA-Public Use
  Company Number: GB-ASTRAZENECA-2016SF03836

PATIENT
  Age: 81 Year
  Sex: Female

DRUGS (1)
  1. ONGLYZA [Suspect]
     Active Substance: SAXAGLIPTIN HYDROCHLORIDE
     Route: 048
     Dates: start: 20160620, end: 20160801

REACTIONS (8)
  - Oropharyngeal pain [Unknown]
  - Anosmia [Not Recovered/Not Resolved]
  - Sinusitis [Recovering/Resolving]
  - Malaise [Unknown]
  - Cough [Not Recovered/Not Resolved]
  - Nasal congestion [Not Recovered/Not Resolved]
  - Deafness [Recovered/Resolved]
  - Ear congestion [Not Recovered/Not Resolved]

NARRATIVE: CASE EVENT DATE: 20160621
